FAERS Safety Report 10389763 (Version 1)
Quarter: 2014Q1

REPORT INFORMATION
  Report Type: Spontaneous
  Country: US (occurrence: None)
  Receive Date: 20140306
  Receipt Date: 20140306
  Transmission Date: 20141002
  Serious: Yes (Hospitalization, Disabling)
  Sender: FDA-Public Use
  Company Number: 163-21880-13091982

PATIENT
  Age: 61 Year
  Sex: Male

DRUGS (1)
  1. REVLIMID (LENALIDOMIDE) (25 MILLIGRAM, CAPSULES) [Suspect]
     Indication: PLASMA CELL LEUKAEMIA
     Route: 048
     Dates: start: 20130626

REACTIONS (3)
  - Plasma cell leukaemia [None]
  - Disease progression [None]
  - Drug ineffective [None]
